FAERS Safety Report 8617337-2 (Version None)
Quarter: 2012Q3

REPORT INFORMATION
  Report Type: 
  Country: None (occurrence: None)
  Receive Date: 20120823
  Receipt Date: 20120802
  Transmission Date: 20120928
  Serious: Yes (Other)
  Sender: FDA-Public Use
  Company Number: JP-009507513-2012SP030080

PATIENT

DRUGS (10)
  1. PEG-INTRON [Suspect]
     Dosage: 0.75MCG/KG/WEEK
     Route: 058
     Dates: start: 20120615, end: 20120615
  2. REBETOL [Suspect]
     Route: 048
     Dates: start: 20120615
  3. REBETOL [Suspect]
     Indication: HEPATITIS C
     Route: 048
     Dates: start: 20120518, end: 20120614
  4. REBETOL [Suspect]
     Indication: PRODUCT USED FOR UNKNOWN INDICATION
     Dosage: 600 MG, QD
     Route: 048
     Dates: start: 20120518
  5. ANTIVIRAL (UNSPECIFIED) [Suspect]
     Indication: PRODUCT USED FOR UNKNOWN INDICATION
     Dosage: 1500 MG, QD
     Route: 048
     Dates: start: 20120518, end: 20120521
  6. TELAVIC [Suspect]
     Indication: HEPATITIS C
     Route: 048
     Dates: start: 20120518, end: 20120521
  7. PEG-INTRON [Suspect]
     Indication: HEPATITIS C
     Dosage: 1.5MCG/KG/WEEK
     Route: 058
     Dates: start: 20120518, end: 20120607
  8. TELAVIC [Suspect]
     Route: 048
     Dates: start: 20120526
  9. PEG-INTRON [Suspect]
     Indication: PRODUCT USED FOR UNKNOWN INDICATION
     Dosage: 1.5 ?G/KG, UNKNOWN
     Route: 058
     Dates: start: 20120518
  10. PEG-INTRON [Suspect]
     Dosage: 1.5MCG/KG/WEEK
     Route: 058
     Dates: start: 20120619

REACTIONS (4)
  - BLOOD UREA INCREASED [None]
  - HAEMOGLOBIN DECREASED [None]
  - BLOOD URIC ACID INCREASED [None]
  - BLOOD CREATININE INCREASED [None]
